FAERS Safety Report 20438112 (Version 1)
Quarter: 2022Q1

REPORT INFORMATION
  Report Type: Spontaneous
  Country: KR (occurrence: KR)
  Receive Date: 20220207
  Receipt Date: 20220207
  Transmission Date: 20220423
  Serious: Yes (Hospitalization, Other)
  Sender: FDA-Public Use
  Company Number: KR-ALKEM LABORATORIES LIMITED-KR-ALKEM-2021-07308

PATIENT
  Age: 67 Year
  Sex: Male

DRUGS (2)
  1. PREGABALIN [Suspect]
     Active Substance: PREGABALIN
     Indication: Chronic kidney disease
     Dosage: 300MG/DAY2
     Route: 065
  2. PREGABALIN [Suspect]
     Active Substance: PREGABALIN
     Dosage: 450MG/DAY 7
     Route: 065

REACTIONS (3)
  - Myoclonus [Unknown]
  - Aphasia [Unknown]
  - Dysarthria [Unknown]
